FAERS Safety Report 6383969-8 (Version None)
Quarter: 2009Q3

REPORT INFORMATION
  Report Type: 
  Country: None (occurrence: None)
  Receive Date: 20090928
  Receipt Date: 20090907
  Transmission Date: 20100115
  Serious: Yes (Hospitalization, Other)
  Sender: FDA-Public Use
  Company Number: 230031M09FRA

PATIENT
  Age: 37 Year
  Sex: Female
  Weight: 53 kg

DRUGS (6)
  1. REBIF [Suspect]
     Indication: MULTIPLE SCLEROSIS
     Dosage: 44 MCG, 3 IN 1 WEEKS
     Dates: start: 20060906, end: 20090701
  2. LODOZ (GALENIC/BISOPROLOL/HYDROCHLOROTHIAZIDE/) [Concomitant]
  3. EXFORGE [Concomitant]
  4. VALSARTAN [Concomitant]
  5. ACETAMINOPHEN [Concomitant]
  6. ATARAX (HYDROXYZINE /00058401/) [Concomitant]

REACTIONS (18)
  - ANAEMIA [None]
  - ARTERIOVENOUS FISTULA THROMBOSIS [None]
  - EPISTAXIS [None]
  - HAEMODIALYSIS [None]
  - HYPERSENSITIVITY [None]
  - INJECTION SITE HAEMATOMA [None]
  - INJECTION SITE HAEMORRHAGE [None]
  - LEUKOCYTOSIS [None]
  - NEPHROANGIOSCLEROSIS [None]
  - NEPHROPATHY [None]
  - PAIN [None]
  - PERIRENAL HAEMATOMA [None]
  - PLATELET AGGREGATION DECREASED [None]
  - PLATELET FUNCTION TEST ABNORMAL [None]
  - RENAL FAILURE CHRONIC [None]
  - THROMBIN TIME PROLONGED [None]
  - THROMBOCYTOPENIA [None]
  - VENOUS INJURY [None]
